FAERS Safety Report 22343591 (Version 3)
Quarter: 2024Q1

REPORT INFORMATION
  Report Type: Other
  Country: CA (occurrence: CA)
  Receive Date: 20230519
  Receipt Date: 20240206
  Transmission Date: 20240409
  Serious: Yes (Life-Threatening, Hospitalization, Other)
  Sender: FDA-Public Use
  Company Number: CA-CELLTRION INC.-2023CA008939

PATIENT

DRUGS (4)
  1. RITUXIMAB [Suspect]
     Active Substance: RITUXIMAB
     Indication: Myasthenia gravis
     Route: 065
  2. AZATHIOPRINE [Suspect]
     Active Substance: AZATHIOPRINE
     Indication: Myasthenia gravis
     Route: 065
  3. PREDNISONE [Suspect]
     Active Substance: PREDNISONE
     Indication: Myasthenia gravis
     Route: 065
  4. FLUOXETINE [Suspect]
     Active Substance: FLUOXETINE HYDROCHLORIDE
     Indication: Depression
     Route: 065

REACTIONS (7)
  - Drug ineffective for unapproved indication [Recovering/Resolving]
  - Off label use [Recovering/Resolving]
  - Disturbance in attention [Unknown]
  - Fatigue [Unknown]
  - Amnesia [Unknown]
  - Drug ineffective [Unknown]
  - Intentional product use issue [Unknown]
